FAERS Safety Report 22284075 (Version 1)
Quarter: 2023Q2

REPORT INFORMATION
  Report Type: Spontaneous
  Country: IN (occurrence: IN)
  Receive Date: 20230504
  Receipt Date: 20230504
  Transmission Date: 20230722
  Serious: Yes (Hospitalization, Other)
  Sender: FDA-Public Use
  Company Number: IN-SUN PHARMACEUTICAL INDUSTRIES LTD-2023R1-387474

PATIENT
  Age: 28 Year
  Sex: Female

DRUGS (5)
  1. ASPIRIN [Suspect]
     Active Substance: ASPIRIN
     Indication: Postpartum haemorrhage
     Dosage: 375 MILLIGRAM
     Route: 065
  2. ATORVASTATIN [Suspect]
     Active Substance: ATORVASTATIN
     Indication: Postpartum haemorrhage
     Dosage: 40 MILLIGRAM, QD
     Route: 065
  3. ENOXAPARIN SODIUM [Suspect]
     Active Substance: ENOXAPARIN SODIUM
     Indication: Postpartum haemorrhage
     Dosage: 0.4 ML/40MG, S/C QD
     Route: 058
  4. TRAMADOL [Suspect]
     Active Substance: TRAMADOL
     Indication: Acute coronary syndrome
     Dosage: 50 MILLIGRAM, TID
     Route: 042
  5. FUROSEMIDE [Suspect]
     Active Substance: FUROSEMIDE
     Indication: Left ventricular failure
     Dosage: 5 MG/HR
     Route: 042

REACTIONS (3)
  - Generalised tonic-clonic seizure [Unknown]
  - Cardiac arrest [Unknown]
  - Stress cardiomyopathy [Recovered/Resolved]
